FAERS Safety Report 4333000-0 (Version None)
Quarter: 2004Q1

REPORT INFORMATION
  Report Type: 
  Country: None (occurrence: None)
  Receive Date: 20040330
  Receipt Date: 20040317
  Transmission Date: 20041129
  Serious: Yes (Hospitalization, Disabling, Congenital Anomaly)
  Sender: FDA-Public Use
  Company Number: 04P-056-0254091-00

PATIENT
  Age: 1 Day
  Sex: Male

DRUGS (4)
  1. DEPAKINE CHRONO TABLETS (SODIUM VALPROATE) 9SODIUM VALPROATE) [Suspect]
     Dosage: TRANSPLACENTAL
     Route: 064
  2. DIAZEPAM [Concomitant]
  3. MIDAZOLAM HYDROCHLORIDE [Concomitant]
  4. PRODILANTIN [Concomitant]

REACTIONS (3)
  - COLOBOMA [None]
  - MATERNAL DRUGS AFFECTING FOETUS [None]
  - WEIGHT DECREASE NEONATAL [None]
